FAERS Safety Report 5253458-2 (Version None)
Quarter: 2007Q1

REPORT INFORMATION
  Report Type: 
  Country: None (occurrence: None)
  Receive Date: 20070301
  Receipt Date: 20070222
  Transmission Date: 20070707
  Serious: Yes (Death, Other)
  Sender: FDA-Public Use
  Company Number: DE-ROXANE LABORATORIES, INC-2007-BP-02556RO

PATIENT
  Age: 52 Year
  Sex: Female

DRUGS (10)
  1. AZATHIOPRINE [Suspect]
     Indication: MULTIPLE SCLEROSIS
     Dosage: 150 MG/DAY
     Dates: start: 19940101, end: 19980101
  2. PREDNISONE [Suspect]
     Indication: ANAEMIA HAEMOLYTIC AUTOIMMUNE
     Dosage: 1 MG/KG/DAY
     Dates: start: 20040101
  3. IFN-BETA [Suspect]
     Indication: MULTIPLE SCLEROSIS
     Dosage: 22 MCG, 3 X WEEK
     Route: 058
     Dates: start: 19980101, end: 20030801
  4. COPOLYMER-1 [Suspect]
     Indication: MULTIPLE SCLEROSIS
     Dates: start: 20030801, end: 20041101
  5. IMMUNE GLOBULIN INTRAVENOUS (HUMAN) [Suspect]
     Indication: ANAEMIA HAEMOLYTIC AUTOIMMUNE
     Route: 042
     Dates: start: 20040101
  6. CYTARABINE [Suspect]
     Indication: ANAEMIA HAEMOLYTIC AUTOIMMUNE
     Dosage: 8,000 MG/M2
     Dates: start: 20040801
  7. MITOXANTRONE [Suspect]
     Indication: ANAEMIA HAEMOLYTIC AUTOIMMUNE
     Dosage: 30 MG/M2
     Dates: start: 20040801
  8. FLUDARABINE [Suspect]
     Indication: BONE MARROW CONDITIONING REGIMEN
     Dosage: 30 MG/M2
     Dates: start: 20041101, end: 20041101
  9. CYCLOSPORINE [Suspect]
     Indication: PROPHYLAXIS AGAINST GRAFT VERSUS HOST DISEASE
     Dates: start: 20041101
  10. MYCOPHENOLATE MOFETIL [Suspect]
     Indication: PROPHYLAXIS AGAINST GRAFT VERSUS HOST DISEASE
     Dates: start: 20041101

REACTIONS (10)
  - ACUTE MYELOID LEUKAEMIA [None]
  - ANAEMIA HAEMOLYTIC AUTOIMMUNE [None]
  - CHROMOSOME ABNORMALITY [None]
  - DRUG INEFFECTIVE [None]
  - LEUKAEMIA RECURRENT [None]
  - MYELODYSPLASTIC SYNDROME [None]
  - PANCYTOPENIA [None]
  - SEPSIS [None]
  - SPLENOMEGALY [None]
  - SUBDURAL HAEMATOMA [None]
